FAERS Safety Report 9450606 (Version 2)
Quarter: 2013Q3

REPORT INFORMATION
  Report Type: Report from Study
  Country: US (occurrence: US)
  Receive Date: 20130809
  Receipt Date: 20130828
  Transmission Date: 20140515
  Serious: Yes (Hospitalization)
  Sender: FDA-Public Use
  Company Number: US-ACTELION-A-NJ2013-86675

PATIENT
  Age: 69 Year
  Sex: Female

DRUGS (18)
  1. TRACLEER [Suspect]
     Indication: PULMONARY ARTERIAL HYPERTENSION
     Dosage: 125 MG, BID
     Route: 048
     Dates: start: 2012
  2. TRACLEER [Suspect]
     Dosage: 62.5 MG, BID
     Route: 048
     Dates: start: 2012, end: 2012
  3. ADCIRCA [Concomitant]
     Dosage: 40 MG, QD
     Dates: start: 201105
  4. COREG [Concomitant]
     Dosage: 12.5 MG, BID
     Dates: start: 2011
  5. LIPITOR [Concomitant]
     Dosage: 20 MG, QD
     Dates: start: 201303
  6. PLAVIX [Concomitant]
     Dosage: 75 MG, UNK
     Dates: start: 20080805
  7. CELEXA [Concomitant]
     Dosage: 20 MG, UNK
     Dates: start: 2011
  8. PROCARDIA [Concomitant]
     Dosage: 30 MG, UNK
     Dates: start: 2010
  9. RANITIDINE [Concomitant]
     Dosage: 150 MG, BID
     Dates: start: 2008
  10. HYDRALAZINE [Concomitant]
     Dosage: 25 MG, TID
     Dates: start: 2011
  11. LISINOPRIL [Concomitant]
     Dosage: 20 MG, UNK
     Dates: start: 2008
  12. GABAPENTIN [Concomitant]
     Dosage: 300 MG, TID
     Dates: start: 2008
  13. LASIX [Concomitant]
     Dosage: 40 MG, QD
     Dates: start: 2009
  14. FOLIC ACID [Concomitant]
     Dosage: 800 MCG, UNK
     Dates: start: 2011
  15. TRAMADOL [Concomitant]
     Dosage: UNK, PRN
     Dates: start: 201202
  16. HUMULIN [Concomitant]
     Dosage: 25 U, BID
     Dates: start: 2008
  17. CALCIUM + VITAMIN D [Concomitant]
     Dosage: 600 MG, BID
     Dates: start: 2008
  18. VITAMIN B12 [Concomitant]
     Dosage: UNK, BID
     Dates: start: 2012

REACTIONS (4)
  - Hypertension [Recovering/Resolving]
  - Anaemia [Recovering/Resolving]
  - Transfusion [Recovering/Resolving]
  - Malaise [Recovered/Resolved]
